FAERS Safety Report 10248864 (Version 1)
Quarter: 2014Q2

REPORT INFORMATION
  Report Type: Report from Study
  Country: CA (occurrence: CA)
  Receive Date: 20140620
  Receipt Date: 20140620
  Transmission Date: 20141212
  Serious: Yes (Hospitalization)
  Sender: FDA-Public Use
  Company Number: CA-JNJFOC-20140609862

PATIENT
  Sex: Male
  Weight: 72.58 kg

DRUGS (1)
  1. REMICADE [Suspect]
     Indication: COLITIS ULCERATIVE
     Route: 042
     Dates: start: 2012, end: 2013

REACTIONS (3)
  - Intestinal fistula [Recovering/Resolving]
  - Infection [Recovering/Resolving]
  - Anaesthetic complication [Recovering/Resolving]
